FAERS Safety Report 17230015 (Version 1)
Quarter: 2020Q1

REPORT INFORMATION
  Report Type: Spontaneous
  Country: US (occurrence: US)
  Receive Date: 20200103
  Receipt Date: 20200103
  Transmission Date: 20200409
  Serious: No
  Sender: FDA-Public Use
  Company Number: US-TARO-2019TAR00844

PATIENT
  Age: 9 Year
  Sex: Female
  Weight: 39 kg

DRUGS (2)
  1. IBUPROFEN ORAL SUSPENSION USP 100 MG/5 ML (OTC CHILDREN?S) [Suspect]
     Active Substance: IBUPROFEN
     Indication: MUSCLE TIGHTNESS
     Dosage: 200 MG, ONCE
     Route: 048
     Dates: start: 20191208, end: 20191208
  2. ZYRTEC [Concomitant]
     Active Substance: CETIRIZINE HYDROCHLORIDE
     Dosage: UNK, AS NEEDED

REACTIONS (11)
  - Product substitution issue [Recovered/Resolved]
  - Cough [Recovered/Resolved]
  - Off label use [Recovered/Resolved]
  - Reaction to excipient [Not Recovered/Not Resolved]
  - Pharyngeal erythema [Unknown]
  - Asthma [Recovered/Resolved]
  - Throat irritation [Recovered/Resolved]
  - Oropharyngeal pain [Recovered/Resolved]
  - Dyspnoea [Recovered/Resolved]
  - Underdose [Recovered/Resolved]
  - Nasal congestion [Recovered/Resolved]

NARRATIVE: CASE EVENT DATE: 20191208
